FAERS Safety Report 9736434 (Version 1)
Quarter: 2013Q4

REPORT INFORMATION
  Report Type: Spontaneous
  Country: US (occurrence: US)
  Receive Date: 20131206
  Receipt Date: 20131206
  Transmission Date: 20140711
  Serious: Yes (Other)
  Sender: FDA-Public Use
  Company Number: US-PFIZER INC-2013344982

PATIENT
  Age: 84 Year
  Sex: Female
  Weight: 73.02 kg

DRUGS (6)
  1. AMLODIPINE BESILATE [Suspect]
     Indication: HYPERTENSION
     Dosage: UNK
     Dates: start: 2013
  2. LOSARTAN POTASSIUM [Concomitant]
     Indication: HYPERTENSION
     Dosage: 100 MG, DAILY
     Route: 048
     Dates: start: 20131001
  3. CLOPIDOGREL BISULFATE [Concomitant]
     Dosage: UNK
  4. LEVOTHYROXINE [Concomitant]
     Dosage: UNK
  5. CELEBREX [Concomitant]
     Dosage: 200 MG, UNK
  6. DOCQLACE [Concomitant]
     Dosage: UNK

REACTIONS (1)
  - Constipation [Unknown]
